FAERS Safety Report 7352810-9 (Version None)
Quarter: 2011Q1

REPORT INFORMATION
  Report Type: 
  Country: None (occurrence: None)
  Receive Date: 20110315
  Receipt Date: 20110228
  Transmission Date: 20110831
  Serious: Yes (Hospitalization, Other)
  Sender: FDA-Public Use
  Company Number: US-ROCHE-747851

PATIENT
  Sex: Female
  Weight: 53.1 kg

DRUGS (3)
  1. ACCUTANE [Suspect]
     Indication: ACNE
     Route: 065
     Dates: start: 19890101
  2. ACCUTANE [Suspect]
     Route: 065
     Dates: start: 19910901
  3. ACCUTANE [Suspect]
     Route: 065
     Dates: start: 19890313, end: 19890601

REACTIONS (7)
  - EMOTIONAL DISTRESS [None]
  - COLONIC STENOSIS [None]
  - INFLAMMATORY BOWEL DISEASE [None]
  - PSORIASIS [None]
  - CROHN'S DISEASE [None]
  - ARTHRALGIA [None]
  - NEPHROLITHIASIS [None]
